FAERS Safety Report 4407759-8 (Version None)
Quarter: 2004Q3

REPORT INFORMATION
  Report Type: 
  Country: None (occurrence: None)
  Receive Date: 20040722
  Receipt Date: 20040716
  Transmission Date: 20050211
  Serious: Yes (Other)
  Sender: FDA-Public Use
  Company Number: 2004046242

PATIENT
  Age: 72 Year
  Sex: Female
  Weight: 62.1428 kg

DRUGS (9)
  1. VISINE TEARS (GLYCERIN, HYDROXYPROPYLMETHYLCELLULOSE, POLYTHYLENE GLYC [Suspect]
     Indication: KERATOCONJUNCTIVITIS SICCA
     Dosage: OPHTHALMIC
     Route: 047
  2. CELECOXIB [Concomitant]
  3. PROPACET (DEXTROPROPOXYPHENE NAPSILATE, PARACETAMOL) [Concomitant]
  4. HYDROCHLOROTHIAZIDE [Concomitant]
  5. CAPTOPRIL [Concomitant]
  6. NIFEDIPINE [Concomitant]
  7. CROMOLYN SODIUM [Concomitant]
  8. ALBUTEROL SULFATE [Concomitant]
  9. DESLORATADINE [Concomitant]

REACTIONS (1)
  - CATARACT [None]
